FAERS Safety Report 5342099-4 (Version None)
Quarter: 2007Q2

REPORT INFORMATION
  Report Type: 
  Country: None (occurrence: None)
  Receive Date: 20070601
  Receipt Date: 20070518
  Transmission Date: 20071010
  Serious: Yes (Hospitalization)
  Sender: FDA-Public Use
  Company Number: GBWYE686521MAY07

PATIENT

DRUGS (4)
  1. EFFEXOR XR [Suspect]
     Dosage: UNKNOWN
     Route: 048
     Dates: start: 20070110, end: 20070501
  2. EFFEXOR XR [Suspect]
     Route: 048
     Dates: start: 20070501
  3. LORAZEPAM [Concomitant]
     Dosage: UNKNOWN
  4. DIGOXIN [Concomitant]
     Dosage: UNKNOWN

REACTIONS (2)
  - HYPERHIDROSIS [None]
  - SLEEP DISORDER [None]
